FAERS Safety Report 7044109-5 (Version None)
Quarter: 2010Q4

REPORT INFORMATION
  Report Type: 
  Country: None (occurrence: None)
  Receive Date: 20101013
  Receipt Date: 20101004
  Transmission Date: 20110411
  Serious: Yes (Other)
  Sender: FDA-Public Use
  Company Number: US-PFIZER INC-2010125952

PATIENT
  Sex: Female

DRUGS (2)
  1. CHANTIX [Suspect]
  2. NITROSTAT [Suspect]

REACTIONS (1)
  - ARTERIOSPASM CORONARY [None]
